FAERS Safety Report 23431720 (Version 1)
Quarter: 2024Q1

REPORT INFORMATION
  Report Type: Spontaneous
  Country: CN (occurrence: CN)
  Receive Date: 20240123
  Receipt Date: 20240123
  Transmission Date: 20240410
  Serious: Yes (Other)
  Sender: FDA-Public Use
  Company Number: CN-Accord-402124

PATIENT
  Age: 28 Year
  Sex: Male

DRUGS (4)
  1. FLUOROURACIL [Suspect]
     Active Substance: FLUOROURACIL
     Indication: Small intestine adenocarcinoma
     Dosage: BOLUS ?A CONTINUOUS 46 H INFUSION OF 2,400 MG/M2 ON DAY 2
     Dates: start: 202108
  2. IRINOTECAN [Suspect]
     Active Substance: IRINOTECAN
     Indication: Small intestine adenocarcinoma
     Dosage: ON DAY 2
     Dates: start: 202108
  3. LEUCOVORIN [Suspect]
     Active Substance: LEUCOVORIN\LEUCOVORIN CALCIUM
     Indication: Small intestine adenocarcinoma
     Dosage: ON DAY 2
     Dates: start: 202108
  4. TRASTUZUMAB [Suspect]
     Active Substance: TRASTUZUMAB
     Indication: Small intestine adenocarcinoma
     Dosage: ON DAY 1
     Dates: start: 202108

REACTIONS (2)
  - Intestinal obstruction [Unknown]
  - Sinus bradycardia [Unknown]
